FAERS Safety Report 7155692-3 (Version None)
Quarter: 2010Q4

REPORT INFORMATION
  Report Type: 
  Country: None (occurrence: None)
  Receive Date: 20101214
  Receipt Date: 20101201
  Transmission Date: 20110411
  Serious: Yes (Other)
  Sender: FDA-Public Use
  Company Number: US-CELGENEUS-163-21880-10120596

PATIENT
  Sex: Female

DRUGS (3)
  1. REVLIMID [Suspect]
     Route: 048
     Dates: start: 20090301, end: 20100411
  2. REVLIMID [Suspect]
     Route: 048
     Dates: start: 20100422, end: 20100902
  3. REVLIMID [Suspect]
     Route: 048
     Dates: start: 20101102

REACTIONS (3)
  - ANAEMIA [None]
  - BLOOD TEST ABNORMAL [None]
  - NEOPLASM MALIGNANT [None]
